FAERS Safety Report 4664898-4 (Version None)
Quarter: 2005Q2

REPORT INFORMATION
  Report Type: 
  Country: None (occurrence: None)
  Receive Date: 20050517
  Receipt Date: 20050428
  Transmission Date: 20051028
  Serious: Yes (Hospitalization)
  Sender: FDA-Public Use
  Company Number: FR_050406332

PATIENT
  Age: 59 Year
  Sex: Female
  Weight: 49 kg

DRUGS (3)
  1. GEMZAR [Suspect]
     Dosage: 1800 MG/2 OTHER
     Dates: start: 20050311, end: 20050405
  2. CARBOPLATIN [Concomitant]
  3. CHLORPROMAZINE HCL [Concomitant]

REACTIONS (1)
  - ATRIAL FIBRILLATION [None]
